FAERS Safety Report 10183293 (Version 2)
Quarter: 2014Q2

REPORT INFORMATION
  Report Type: Report from Study
  Country: GB (occurrence: GB)
  Receive Date: 20140520
  Receipt Date: 20140520
  Transmission Date: 20141212
  Serious: Yes (Death, Life-Threatening, Hospitalization, Disabling, Other)
  Sender: FDA-Public Use
  Company Number: GB-CELGENEUS-167-50794-14041343

PATIENT
  Age: 77 Year
  Sex: Male
  Weight: 64.3 kg

DRUGS (11)
  1. VIDAZA [Suspect]
     Indication: ACUTE MYELOID LEUKAEMIA
     Dosage: 130 MILLIGRAM/SQ. METER
     Route: 058
     Dates: start: 20140310, end: 20140319
  2. VORINOSTAT [Suspect]
     Indication: ACUTE MYELOID LEUKAEMIA
     Dosage: 600 MILLIGRAM
     Route: 048
     Dates: start: 20140312, end: 20140320
  3. POTASSIUM EFFERVESENT [Suspect]
     Indication: HYPOKALAEMIA
     Dosage: 13 MILLIMOLE
     Route: 048
     Dates: start: 20140312, end: 20140324
  4. DOXAZOCIN [Concomitant]
     Indication: HYPERTENSION
     Route: 065
     Dates: start: 20030515, end: 20140413
  5. FELODIPINE [Concomitant]
     Indication: HYPERTENSION
     Route: 065
     Dates: start: 20031019, end: 20140423
  6. BISOPROLOL [Concomitant]
     Indication: HYPERTENSION
     Route: 065
     Dates: start: 20120105, end: 20140413
  7. AMILORIDE [Concomitant]
     Indication: DIURETIC THERAPY
     Route: 065
     Dates: start: 20140316, end: 20140325
  8. TAMSULOSIN [Concomitant]
     Indication: BENIGN PROSTATIC HYPERPLASIA
     Route: 065
     Dates: start: 20111108
  9. FUROSEMIDE [Concomitant]
     Indication: DIURETIC THERAPY
     Route: 065
     Dates: start: 20140315, end: 20140325
  10. ALLOPURINOL [Concomitant]
     Indication: TUMOUR LYSIS SYNDROME
     Route: 065
     Dates: start: 20140402, end: 20140423
  11. HYDROXYCARBAMIDE [Concomitant]
     Indication: WHITE BLOOD CELL COUNT
     Route: 065
     Dates: start: 20140402, end: 20140413

REACTIONS (11)
  - Bronchopneumonia [Fatal]
  - Pneumonia [Recovered/Resolved with Sequelae]
  - Localised oedema [Not Recovered/Not Resolved]
  - Skin ulcer [Not Recovered/Not Resolved]
  - Hyperkalaemia [Recovered/Resolved with Sequelae]
  - Urinary tract infection [Not Recovered/Not Resolved]
  - Thrombocytopenia [Not Recovered/Not Resolved]
  - Melaena [Not Recovered/Not Resolved]
  - Haematuria [Not Recovered/Not Resolved]
  - Blood creatinine increased [Recovered/Resolved with Sequelae]
  - Anaemia [Not Recovered/Not Resolved]
